FAERS Safety Report 8180008-3 (Version None)
Quarter: 2012Q1

REPORT INFORMATION
  Report Type: 
  Country: None (occurrence: None)
  Receive Date: 20120302
  Receipt Date: 20120222
  Transmission Date: 20120608
  Serious: Yes (Disabling)
  Sender: FDA-Public Use
  Company Number: US-BAYER-2011-104758

PATIENT
  Age: 50 Year
  Sex: Male
  Weight: 102.49 kg

DRUGS (1)
  1. CIPRO [Suspect]
     Indication: PROSTATITIS
     Dosage: UNK (X 2 DAYS)
     Route: 048
     Dates: start: 20111001

REACTIONS (4)
  - MOBILITY DECREASED [None]
  - PAIN IN EXTREMITY [None]
  - MUSCLE TWITCHING [None]
  - NEUROPATHY PERIPHERAL [None]
